FAERS Safety Report 5319059-2 (Version None)
Quarter: 2007Q1

REPORT INFORMATION
  Report Type: 
  Country: None (occurrence: None)
  Receive Date: 20070202
  Receipt Date: 20060929
  Transmission Date: 20070707
  Serious: No
  Sender: FDA-Public Use
  Company Number: 252484

PATIENT
  Age: 64 Year
  Sex: Male
  Weight: 88.4 kg

DRUGS (6)
  1. NOVOLOG [Suspect]
     Indication: INSULIN-REQUIRING TYPE II DIABETES MELLITUS
     Dosage: SLIDING SCALE, PRE-MEALS, SUBCUTANEOUS
     Route: 058
     Dates: start: 20040301
  2. LANTUS [Concomitant]
  3. COREG [Concomitant]
  4. ATACAND [Concomitant]
  5. NEURONTIN [Concomitant]
  6. NOVOFINE 30 (NEEDLE) [Concomitant]

REACTIONS (1)
  - BLOOD GLUCOSE DECREASED [None]
